FAERS Safety Report 15288075 (Version 1)
Quarter: 2018Q3

REPORT INFORMATION
  Report Type: Spontaneous
  Country: US (occurrence: US)
  Receive Date: 20180802
  Receipt Date: 20180802
  Transmission Date: 20181010
  Serious: Yes (Hospitalization)
  Sender: FDA-Public Use
  Company Number: None

PATIENT
  Age: 72 Year
  Sex: Male

DRUGS (10)
  1. OCTREOTIDE. [Concomitant]
     Active Substance: OCTREOTIDE
  2. POTASSIUM CHLORIDE. [Concomitant]
     Active Substance: POTASSIUM CHLORIDE
  3. CREON [Suspect]
     Active Substance: PANCRELIPASE AMYLASE\PANCRELIPASE LIPASE\PANCRELIPASE PROTEASE
     Indication: CARCINOID TUMOUR OF THE DUODENUM
     Dosage: ?          OTHER FREQUENCY:WITH EACH SNACK;?
     Route: 048
     Dates: start: 20161025
  4. XIFAXAN [Concomitant]
     Active Substance: RIFAXIMIN
  5. CREON [Suspect]
     Active Substance: PANCRELIPASE AMYLASE\PANCRELIPASE LIPASE\PANCRELIPASE PROTEASE
     Indication: CARCINOID TUMOUR OF THE DUODENUM
     Dosage: ?          OTHER FREQUENCY:WITH EACH MEAL;?
     Route: 048
     Dates: start: 20161025
  6. MEGESTROL [Concomitant]
     Active Substance: MEGESTROL
  7. LANSOPRAZOLE. [Concomitant]
     Active Substance: LANSOPRAZOLE
  8. TOVIAZ [Concomitant]
     Active Substance: FESOTERODINE FUMARATE
  9. ATORVASTATIN [Concomitant]
     Active Substance: ATORVASTATIN
  10. FENOFIBRATE. [Concomitant]
     Active Substance: FENOFIBRATE

REACTIONS (2)
  - Radiation injury [None]
  - Internal haemorrhage [None]

NARRATIVE: CASE EVENT DATE: 20180701
